FAERS Safety Report 8110287-X (Version None)
Quarter: 2012Q1

REPORT INFORMATION
  Report Type: 
  Country: None (occurrence: None)
  Receive Date: 20120202
  Receipt Date: 20120126
  Transmission Date: 20120608
  Serious: Yes (Other)
  Sender: FDA-Public Use
  Company Number: DE-ASTRAZENECA-2012SE03459

PATIENT
  Age: 27 Year
  Sex: Female
  Weight: 71 kg

DRUGS (19)
  1. SEROQUEL XR [Suspect]
     Route: 048
     Dates: start: 20120113, end: 20120115
  2. SEROQUEL XR [Suspect]
     Route: 048
     Dates: start: 20120116, end: 20120116
  3. RISPERDAL [Suspect]
     Indication: SCHIZOPHRENIA, PARANOID TYPE
     Dosage: 1.5 - 2 MG DAILY
     Route: 048
     Dates: start: 20120110, end: 20120117
  4. LORAZEPAM [Concomitant]
     Dosage: 3 - 5 MG DAILY
     Route: 048
     Dates: start: 20120109
  5. DALMADORM [Concomitant]
     Route: 048
     Dates: start: 20120116, end: 20120116
  6. PANTOPRAZOLE [Concomitant]
     Route: 048
     Dates: start: 20120109
  7. SEROQUEL XR [Suspect]
     Route: 048
     Dates: start: 20120118
  8. DALMADORM [Concomitant]
     Route: 048
     Dates: start: 20120120, end: 20120120
  9. SEROQUEL XR [Suspect]
     Indication: PSYCHOTIC DISORDER
     Route: 048
     Dates: start: 20120109, end: 20120109
  10. SEROQUEL XR [Suspect]
     Route: 048
     Dates: start: 20120113, end: 20120115
  11. SEROQUEL XR [Suspect]
     Route: 048
     Dates: start: 20120117, end: 20120117
  12. DALMADORM [Concomitant]
     Route: 048
     Dates: start: 20120114, end: 20120114
  13. SEROQUEL XR [Suspect]
     Indication: SCHIZOPHRENIA, PARANOID TYPE
     Route: 048
     Dates: start: 20120109, end: 20120109
  14. SEROQUEL XR [Suspect]
     Route: 048
     Dates: start: 20120110, end: 20120112
  15. SEROQUEL XR [Suspect]
     Route: 048
     Dates: start: 20120116, end: 20120116
  16. SEROQUEL XR [Suspect]
     Route: 048
     Dates: start: 20120110, end: 20120112
  17. SEROQUEL XR [Suspect]
     Route: 048
     Dates: start: 20120118
  18. RISPERDAL [Suspect]
     Indication: PSYCHOTIC DISORDER
     Dosage: 1.5 - 2 MG DAILY
     Route: 048
     Dates: start: 20120110, end: 20120117
  19. SEROQUEL XR [Suspect]
     Route: 048
     Dates: start: 20120117, end: 20120117

REACTIONS (2)
  - URINARY RETENTION [None]
  - DYSURIA [None]
